FAERS Safety Report 21053935 (Version 2)
Quarter: 2022Q3

REPORT INFORMATION
  Report Type: Spontaneous
  Country: US (occurrence: US)
  Receive Date: 20220707
  Receipt Date: 20220728
  Transmission Date: 20221026
  Serious: Yes (Other)
  Sender: FDA-Public Use
  Company Number: US-TEVA-2022-US-2052431

PATIENT

DRUGS (14)
  1. DACARBAZINE [Suspect]
     Active Substance: DACARBAZINE
     Indication: Hodgkin^s disease
     Dosage: COPP REGIMEN (PART OF CONSOLIDATION CHEMOTHERAPY)
     Route: 065
  2. DACARBAZINE [Suspect]
     Active Substance: DACARBAZINE
     Indication: Epstein-Barr virus associated lymphoma
  3. VINCRISTINE [Suspect]
     Active Substance: VINCRISTINE
     Indication: Hodgkin^s disease
     Dosage: COPP REGIMEN (PART OF CONSOLIDATION CHEMOTHERAPY)
     Route: 065
  4. VINCRISTINE [Suspect]
     Active Substance: VINCRISTINE
     Indication: Epstein-Barr virus associated lymphoma
  5. PREDNISONE [Suspect]
     Active Substance: PREDNISONE
     Indication: Hodgkin^s disease
     Dosage: COPP REGIMEN (INDUCTION AND CONSOLIDATION OF CHEMOTHERAPY)
     Route: 065
  6. PREDNISONE [Suspect]
     Active Substance: PREDNISONE
     Indication: Epstein-Barr virus associated lymphoma
  7. BRENTUXIMAB VEDOTIN [Suspect]
     Active Substance: BRENTUXIMAB VEDOTIN
     Indication: Hodgkin^s disease
     Dosage: COPP REGIMEN (INDUCTION AND CONSOLIDATION CHEMOTHERAPY)
     Route: 065
  8. BRENTUXIMAB VEDOTIN [Suspect]
     Active Substance: BRENTUXIMAB VEDOTIN
     Indication: Epstein-Barr virus associated lymphoma
  9. CYCLOPHOSPHAMIDE [Suspect]
     Active Substance: CYCLOPHOSPHAMIDE
     Indication: Hodgkin^s disease
     Dosage: COPP REGIMEN (PART OF CONSOLIDATION CHEMOTHERAPY)
     Route: 065
  10. CYCLOPHOSPHAMIDE [Suspect]
     Active Substance: CYCLOPHOSPHAMIDE
     Indication: Epstein-Barr virus associated lymphoma
  11. VINBLASTINE [Suspect]
     Active Substance: VINBLASTINE
     Indication: Hodgkin^s disease
     Dosage: COPP REGIMEN (PART OF CONSOLIDATION CHEMOTHERAPY)
     Route: 065
  12. VINBLASTINE [Suspect]
     Active Substance: VINBLASTINE
     Indication: Epstein-Barr virus associated lymphoma
  13. PROCARBAZINE [Suspect]
     Active Substance: PROCARBAZINE
     Indication: Hodgkin^s disease
     Dosage: COPP REGIMEN (PART OF CONSOLIDATION CHEMOTHERAPY)
     Route: 065
  14. PROCARBAZINE [Suspect]
     Active Substance: PROCARBAZINE
     Indication: Epstein-Barr virus associated lymphoma

REACTIONS (4)
  - Neuropathy peripheral [Unknown]
  - Osteonecrosis [Unknown]
  - Infection [Unknown]
  - Pain [Unknown]
